FAERS Safety Report 6160413-7 (Version None)
Quarter: 2009Q2

REPORT INFORMATION
  Report Type: 
  Country: None (occurrence: None)
  Receive Date: 20090415
  Receipt Date: 20090415
  Transmission Date: 20091009
  Serious: Yes (Life-Threatening, Other)
  Sender: FDA-Public Use
  Company Number: None

PATIENT
  Age: 49 Year
  Sex: Female
  Weight: 108.8633 kg

DRUGS (1)
  1. ABILIFY [Suspect]

REACTIONS (12)
  - ANXIETY [None]
  - APHASIA [None]
  - BLOOD PRESSURE INCREASED [None]
  - CHEST PAIN [None]
  - DYSKINESIA [None]
  - DYSPEPSIA [None]
  - GAIT DISTURBANCE [None]
  - HEART RATE DECREASED [None]
  - HYPERHIDROSIS [None]
  - MYALGIA [None]
  - THINKING ABNORMAL [None]
  - VISUAL ACUITY REDUCED [None]
